FAERS Safety Report 7931148-2 (Version None)
Quarter: 2011Q4

REPORT INFORMATION
  Report Type: 
  Country: None (occurrence: None)
  Receive Date: 20111121
  Receipt Date: 20111114
  Transmission Date: 20120403
  Serious: Yes (Hospitalization)
  Sender: FDA-Public Use
  Company Number: DE-MERCK-1111USA02019

PATIENT
  Sex: Male

DRUGS (2)
  1. HYDROCORTONE [Suspect]
     Route: 048
  2. DECADRON [Suspect]
     Route: 048

REACTIONS (1)
  - HYPERTROPHIC CARDIOMYOPATHY [None]
